FAERS Safety Report 4573965-5 (Version None)
Quarter: 2005Q1

REPORT INFORMATION
  Report Type: 
  Country: None (occurrence: None)
  Receive Date: 20050204
  Receipt Date: 20050121
  Transmission Date: 20050727
  Serious: Yes (Hospitalization)
  Sender: FDA-Public Use
  Company Number: 8007972

PATIENT
  Age: 57 Year
  Sex: Male

DRUGS (9)
  1. KEPPRA [Suspect]
     Indication: CONVULSION
     Dosage: 1500 MG/D PO
     Route: 048
     Dates: start: 20020101
  2. PAXIL [Concomitant]
  3. KLONOPIN [Concomitant]
  4. TOPAMAX [Concomitant]
  5. DEPAKOTE [Concomitant]
  6. CLOZAPINE [Concomitant]
  7. PREVACID [Concomitant]
  8. FLONASE [Concomitant]
  9. CLONIDINE [Concomitant]

REACTIONS (8)
  - BLOOD CALCIUM INCREASED [None]
  - CONVULSION [None]
  - DEHYDRATION [None]
  - INCREASED VISCOSITY OF BRONCHIAL SECRETION [None]
  - PNEUMONIA [None]
  - POSTNASAL DRIP [None]
  - RHINORRHOEA [None]
  - SOMNOLENCE [None]
